FAERS Safety Report 20908020 (Version 1)
Quarter: 2022Q2

REPORT INFORMATION
  Report Type: Spontaneous
  Country: CA (occurrence: CA)
  Receive Date: 20220602
  Receipt Date: 20220602
  Transmission Date: 20220721
  Serious: Yes (Other)
  Sender: FDA-Public Use
  Company Number: CA-BIOMARINAP-CA-2022-143575

PATIENT
  Age: 13 Year
  Sex: Female
  Weight: 32.2 kg

DRUGS (4)
  1. NAGLAZYME [Suspect]
     Active Substance: GALSULFASE
     Indication: Mucopolysaccharidosis VI
     Dosage: 1 MILLIGRAM/KILOGRAM, QW
     Route: 042
     Dates: start: 2012, end: 202002
  2. FLUTICASONE FUROATE [Concomitant]
     Active Substance: FLUTICASONE FUROATE
     Indication: Hypersensitivity
     Dosage: UNK
     Route: 045
     Dates: start: 2019
  3. EBASTINE [Concomitant]
     Active Substance: EBASTINE
     Indication: Premedication
     Dosage: 2.5 MILLIGRAM, SINGLE
     Route: 048
  4. TYLENOL [Concomitant]
     Active Substance: ACETAMINOPHEN
     Indication: Premedication
     Dosage: 300 MILLIGRAM, SINGLE
     Route: 048
     Dates: start: 2019

REACTIONS (4)
  - Sleep apnoea syndrome [Not Recovered/Not Resolved]
  - Gait disturbance [Unknown]
  - Back pain [Not Recovered/Not Resolved]
  - Pyrexia [Unknown]
